FAERS Safety Report 5469290-0 (Version None)
Quarter: 2007Q3

REPORT INFORMATION
  Report Type: 
  Country: None (occurrence: None)
  Receive Date: 20070927
  Receipt Date: 20070918
  Transmission Date: 20080115
  Serious: Yes (Hospitalization)
  Sender: FDA-Public Use
  Company Number: JP-NOVOPROD-267032

PATIENT
  Age: 70 Year
  Sex: Female
  Weight: 65 kg

DRUGS (21)
  1. NOVORAPID CHU FLEXPEN [Suspect]
     Indication: DIABETES MELLITUS
     Dosage: 12 IU, QD
     Route: 058
     Dates: start: 20070725, end: 20070726
  2. NOVORAPID CHU FLEXPEN [Suspect]
     Dosage: 12 IU, QD
     Route: 058
     Dates: start: 20070802, end: 20070802
  3. NOVORAPID CHU FLEXPEN [Suspect]
     Dosage: 6+6+4 IU, QD
     Route: 058
     Dates: start: 20070802
  4. NOVOLIN N [Suspect]
     Indication: DIABETES MELLITUS
     Dosage: 4 IU, QD
     Route: 058
     Dates: start: 20070725, end: 20070726
  5. NOVOLIN N [Suspect]
     Dosage: 4 IU, QD
     Route: 058
     Dates: start: 20070802, end: 20070802
  6. NOVOLIN N [Suspect]
     Dosage: 8 IU, QD
     Route: 058
     Dates: start: 20070802
  7. NOVOLIN R [Suspect]
     Indication: DIABETES MELLITUS
     Dosage: 4 IU, QD
     Route: 058
     Dates: start: 20070726, end: 20070726
  8. HUMALOG [Concomitant]
     Indication: DIABETES MELLITUS
     Dosage: 12 IU, QD
     Route: 058
     Dates: start: 20070724, end: 20070725
  9. HUMACART N [Concomitant]
     Indication: DIABETES MELLITUS
     Dosage: 4 IU, QD
     Route: 058
     Dates: start: 20070724, end: 20070725
  10. NORVASC [Concomitant]
     Indication: HYPERTENSION
     Dosage: 5 MG, QD
     Route: 048
     Dates: start: 20070810, end: 20070813
  11. PREDNISOLONE [Concomitant]
     Indication: RHEUMATOID ARTHRITIS
     Dosage: 2.5 MG, QD
     Route: 048
     Dates: start: 20061016
  12. AZULFIDINE EN-TABS [Concomitant]
     Indication: RHEUMATOID ARTHRITIS
     Dosage: 1000 MG, QD
     Route: 048
     Dates: start: 20061016
  13. OLMETEC [Concomitant]
     Indication: HYPERTENSION
     Dosage: 40 MG, QD
     Route: 048
  14. RIZABEN [Concomitant]
     Indication: PRURITUS
     Dosage: 300 MG, QD
     Route: 048
     Dates: start: 20070801
  15. GLYCORAN [Concomitant]
     Indication: DIABETES MELLITUS
     Dosage: 500 MG, QD
     Route: 048
     Dates: start: 20070806
  16. ACTOS [Concomitant]
     Indication: DIABETES MELLITUS
     Dosage: 15 MG, QD
     Route: 048
     Dates: start: 20070816
  17. FAMOTIDINE [Concomitant]
     Indication: GASTRIC ULCER
     Dosage: 40 MG, QD
     Route: 048
     Dates: start: 20060907
  18. HYPEN [Concomitant]
     Indication: RHEUMATOID ARTHRITIS
     Dosage: 400 MG, QD
     Route: 048
     Dates: start: 20050221
  19. NOVORAPID 30 MIX CHU FLEXPEN [Concomitant]
     Indication: DIABETES MELLITUS
     Dosage: 18 IU, QD
     Route: 058
     Dates: start: 20070827, end: 20070829
  20. NOVORAPID 30 MIX CHU FLEXPEN [Concomitant]
     Dosage: 10+0+10 IU, QD
     Route: 058
     Dates: start: 20070829, end: 20070908
  21. NOVORAPID 30 MIX CHU FLEXPEN [Concomitant]
     Dosage: 12+0+6 IE, QD
     Route: 058
     Dates: start: 20070908

REACTIONS (5)
  - BLOOD GLUCOSE FLUCTUATION [None]
  - ECZEMA [None]
  - INJECTION SITE ERYTHEMA [None]
  - PRURITUS GENERALISED [None]
  - RASH [None]
